FAERS Safety Report 5133189-X (Version None)
Quarter: 2006Q4

REPORT INFORMATION
  Report Type: 
  Country: None (occurrence: None)
  Receive Date: 20061023
  Receipt Date: 20061013
  Transmission Date: 20070319
  Serious: Yes (Hospitalization)
  Sender: FDA-Public Use
  Company Number: FR-ABBOTT-06P-056-0347051-00

PATIENT
  Sex: Female

DRUGS (8)
  1. DEPAKOTE [Suspect]
     Indication: BIPOLAR DISORDER
     Route: 048
     Dates: start: 20060503
  2. DEPAKOTE [Suspect]
  3. ZOLPIDEM TARTRATE [Suspect]
     Indication: BIPOLAR DISORDER
     Route: 048
     Dates: start: 20051201
  4. CHLORPROMAZINE HYDROCHLORIDE [Suspect]
     Indication: BIPOLAR DISORDER
     Route: 048
     Dates: start: 20051201
  5. CLOMIPRAMINE HYDROCHLORIDE [Suspect]
     Indication: BIPOLAR DISORDER
     Route: 048
     Dates: start: 20060424
  6. ALPRAZOLAM [Suspect]
     Indication: BIPOLAR DISORDER
     Route: 048
     Dates: start: 20051201
  7. NOCTRAN [Suspect]
     Indication: DRUG USE FOR UNKNOWN INDICATION
     Dates: start: 20060401, end: 20060401
  8. CITALOPRAM HYDROBROMIDE [Concomitant]
     Indication: BIPOLAR DISORDER
     Route: 048
     Dates: start: 20051201, end: 20060401

REACTIONS (4)
  - CAESAREAN SECTION [None]
  - INTENTIONAL OVERDOSE [None]
  - PLACENTA PRAEVIA [None]
  - PLACENTA PRAEVIA HAEMORRHAGE [None]
